FAERS Safety Report 24267298 (Version 1)
Quarter: 2024Q3

REPORT INFORMATION
  Report Type: Spontaneous
  Country: CZ (occurrence: CZ)
  Receive Date: 20240830
  Receipt Date: 20240830
  Transmission Date: 20241017
  Serious: Yes (Hospitalization, Other)
  Sender: RANBAXY
  Company Number: CZ-SUN PHARMACEUTICAL INDUSTRIES LTD-2024R1-452420

PATIENT
  Age: 41 Year
  Sex: Female

DRUGS (14)
  1. CARMUSTINE [Suspect]
     Active Substance: CARMUSTINE
     Indication: Peripheral T-cell lymphoma unspecified
     Dosage: UNK (HIGH-DOSE BEAM)
     Route: 065
     Dates: start: 20230906
  2. CARMUSTINE [Suspect]
     Active Substance: CARMUSTINE
     Indication: Chemotherapy
  3. DOXORUBICIN [Suspect]
     Active Substance: DOXORUBICIN
     Indication: Chemotherapy
     Dosage: UNK (50 MILLIGRAM/SQ. METER)
     Route: 065
     Dates: start: 20230330, end: 20230724
  4. MELPHALAN [Suspect]
     Active Substance: MELPHALAN
     Indication: Peripheral T-cell lymphoma unspecified
     Dosage: UNK (HIGH-DOSE BEAM)
     Route: 065
     Dates: start: 20230906
  5. MELPHALAN [Suspect]
     Active Substance: MELPHALAN
     Indication: Chemotherapy
  6. PREDNISONE [Suspect]
     Active Substance: PREDNISONE
     Indication: Chemotherapy
     Dosage: UNK (100 MILLIGRAM)
     Route: 048
     Dates: start: 20230330, end: 20230724
  7. BRENTUXIMAB VEDOTIN [Suspect]
     Active Substance: BRENTUXIMAB VEDOTIN
     Indication: Chemotherapy
     Dosage: UNK (1.8 MILLIGRAM/KILOGRAM,CHEPA REGIMEN)
     Route: 065
     Dates: start: 20230330, end: 20230724
  8. CYCLOPHOSPHAMIDE [Suspect]
     Active Substance: CYCLOPHOSPHAMIDE
     Indication: Chemotherapy
     Dosage: UNK (750 MILLIGRAM/SQ. METER)
     Route: 065
     Dates: start: 20230330, end: 20230724
  9. CYTARABINE [Suspect]
     Active Substance: CYTARABINE
     Indication: Peripheral T-cell lymphoma unspecified
     Dosage: UNK (HIGH-DOSE BEAM)
     Route: 065
     Dates: start: 20230906
  10. CYTARABINE [Suspect]
     Active Substance: CYTARABINE
     Indication: Chemotherapy
  11. ETOPOSIDE [Suspect]
     Active Substance: ETOPOSIDE
     Indication: Peripheral T-cell lymphoma unspecified
     Dosage: UNK (100 MILLIGRAM/SQ. METER)
     Route: 065
     Dates: start: 20230330, end: 20230724
  12. ETOPOSIDE [Suspect]
     Active Substance: ETOPOSIDE
     Indication: Chemotherapy
     Dosage: UNK (100 MILLIGRAM)
     Route: 065
     Dates: start: 20230325
  13. ETOPOSIDE [Suspect]
     Active Substance: ETOPOSIDE
     Dosage: UNK (HIGH-DOSE BEAM CHEMOTHERAPY)
     Route: 065
     Dates: start: 20230906
  14. FILGRASTIM [Suspect]
     Active Substance: FILGRASTIM
     Indication: Chemotherapy
     Dosage: UNK (6 CYCLES OF CHEPA)
     Route: 065
     Dates: start: 20230724

REACTIONS (2)
  - Stomatitis [Unknown]
  - Peripheral sensorimotor neuropathy [Unknown]
